FAERS Safety Report 6700213-X (Version None)
Quarter: 2010Q2

REPORT INFORMATION
  Report Type: 
  Country: None (occurrence: None)
  Receive Date: 20100428
  Receipt Date: 20100421
  Transmission Date: 20101027
  Serious: Yes (Hospitalization, Other)
  Sender: FDA-Public Use
  Company Number: NL-PFIZER INC-2009215766

PATIENT
  Age: 49 Year
  Sex: Male
  Weight: 95 kg

DRUGS (15)
  1. CP-690,550 [Suspect]
     Indication: KIDNEY TRANSPLANT REJECTION
     Dosage: 10 MG, 2X/DAY
     Route: 048
     Dates: start: 20090130
  2. CP-690,550 [Suspect]
     Dosage: 5 MG, 2X/DAY
     Route: 048
     Dates: start: 20091006, end: 20091007
  3. PREDNISOLONE [Suspect]
     Dosage: UNK
  4. MYCOPHENOLATE MOFETIL [Suspect]
     Indication: KIDNEY TRANSPLANT REJECTION
     Dosage: 1000 MG, UNK
     Route: 048
     Dates: start: 20090129
  5. MYCOPHENOLATE MOFETIL [Suspect]
     Dosage: 250 MG, 2X/DAY
     Route: 048
     Dates: start: 20091006, end: 20091007
  6. PANTOZOL [Concomitant]
     Dosage: 40 MG, UNK
     Route: 048
     Dates: start: 20090129
  7. VALCYTE [Concomitant]
     Dosage: 450 MG, UNK
     Route: 048
     Dates: start: 20090130
  8. COTRIM [Concomitant]
     Dosage: 480 MG, UNK
     Route: 048
     Dates: start: 20090131
  9. METOPROLOL TARTRATE [Concomitant]
     Dosage: 100 MG, UNK
     Route: 048
     Dates: start: 20090203
  10. ATORVASTATIN CALCIUM [Concomitant]
     Dosage: 20 MG, UNK
     Route: 048
     Dates: start: 20090303
  11. COVERSYL [Concomitant]
     Dosage: 4 MG, UNK
     Route: 048
     Dates: start: 20090324
  12. AMLODIPINE [Concomitant]
     Dosage: 5 MG, UNK
     Route: 048
     Dates: start: 20090206
  13. AMOXICILLIN [Concomitant]
     Dosage: 4500 MG, UNK
     Route: 048
     Dates: start: 20090514, end: 20090514
  14. AMOXICILLIN [Concomitant]
     Dosage: 2250 MG, UNK
     Dates: start: 20090515, end: 20090516
  15. AMOXICILLIN [Concomitant]
     Dosage: 750 MG, UNK
     Dates: start: 20090517, end: 20090517

REACTIONS (2)
  - ABDOMINAL ABSCESS [None]
  - CYTOMEGALOVIRUS VIRAEMIA [None]
